FAERS Safety Report 4839261-3 (Version None)
Quarter: 2005Q4

REPORT INFORMATION
  Report Type: 
  Country: None (occurrence: None)
  Receive Date: 20051129
  Receipt Date: 20041026
  Transmission Date: 20060501
  Serious: No
  Sender: FDA-Public Use
  Company Number: US-GLAXOSMITHKLINE-A0531305A

PATIENT
  Age: 82 Year
  Sex: Female

DRUGS (3)
  1. WELLBUTRIN SR [Suspect]
     Indication: DEPRESSION
     Route: 048
  2. NAMENDA [Concomitant]
  3. DETROL LA [Concomitant]

REACTIONS (1)
  - HYPOTENSION [None]
